FAERS Safety Report 5308811-5 (Version None)
Quarter: 2007Q2

REPORT INFORMATION
  Report Type: 
  Country: None (occurrence: None)
  Receive Date: 20070426
  Receipt Date: 20070416
  Transmission Date: 20071010
  Serious: Yes (Hospitalization, Other)
  Sender: FDA-Public Use
  Company Number: NO-PFIZER INC-2007031728

PATIENT
  Sex: Male

DRUGS (9)
  1. CELEBRA [Suspect]
     Indication: NECK INJURY
     Route: 048
  2. VIOXX [Suspect]
     Indication: NECK INJURY
  3. SELO-ZOK [Suspect]
     Indication: HYPERTENSION
     Route: 048
     Dates: start: 20050610, end: 20060310
  4. SAROTEX [Suspect]
     Route: 048
     Dates: start: 20050501, end: 20060925
  5. NEXIUM [Concomitant]
  6. IMOVANE [Concomitant]
  7. VALLERGAN [Concomitant]
     Route: 048
  8. REMERON [Concomitant]
  9. PINEX FORTE [Concomitant]

REACTIONS (10)
  - ANGINA UNSTABLE [None]
  - BRONCHIAL HYPERREACTIVITY [None]
  - CARDIAC DISORDER [None]
  - CORONARY ARTERY STENOSIS [None]
  - DYSPNOEA [None]
  - HEART RATE INCREASED [None]
  - HYPERTENSION [None]
  - INCREASED VISCOSITY OF BRONCHIAL SECRETION [None]
  - MYOCARDIAL ISCHAEMIA [None]
  - SALIVA ALTERED [None]
